FAERS Safety Report 16170336 (Version 4)
Quarter: 2019Q4

REPORT INFORMATION
  Report Type: Spontaneous
  Country: CA (occurrence: CA)
  Receive Date: 20190408
  Receipt Date: 20191010
  Transmission Date: 20200122
  Serious: Yes (Other)
  Sender: FDA-Public Use
  Company Number: CA-ALLERGAN-1914809US

PATIENT
  Sex: Female

DRUGS (28)
  1. OXYNEO [Suspect]
     Active Substance: OXYCODONE
     Indication: PRODUCT USED FOR UNKNOWN INDICATION
     Dosage: 15 MG, TID
     Route: 065
  2. OXYCODONE HYDROCHLORIDE. [Suspect]
     Active Substance: OXYCODONE HYDROCHLORIDE
     Indication: PRODUCT USED FOR UNKNOWN INDICATION
     Dosage: 15 MG, TID
     Route: 065
  3. PREDNISONE. [Suspect]
     Active Substance: PREDNISONE
     Indication: PRODUCT USED FOR UNKNOWN INDICATION
     Dosage: 15 MG, QD
     Route: 065
  4. BREO ELLIPTA [Suspect]
     Active Substance: FLUTICASONE FUROATE\VILANTEROL TRIFENATATE
     Indication: PRODUCT USED FOR UNKNOWN INDICATION
     Dosage: 1 DF, QD
     Route: 055
  5. COLACE [Suspect]
     Active Substance: DOCUSATE SODIUM
     Indication: PRODUCT USED FOR UNKNOWN INDICATION
     Dosage: 200 MG, QD
     Route: 065
  6. ESTRADIOL. [Suspect]
     Active Substance: ESTRADIOL
     Indication: PRODUCT USED FOR UNKNOWN INDICATION
     Dosage: 3 DF, QD
     Route: 065
  7. RIVAROXABAN [Suspect]
     Active Substance: RIVAROXABAN
     Indication: PRODUCT USED FOR UNKNOWN INDICATION
     Dosage: 10 MG, QD
     Route: 065
  8. RISEDRONATE SODIUM - BP [Suspect]
     Active Substance: RISEDRONATE SODIUM
     Indication: PRODUCT USED FOR UNKNOWN INDICATION
     Dosage: 35 MG, EVERY 1 WEEK
     Route: 065
  9. SALBUTAMOL SULFATE [Suspect]
     Active Substance: ALBUTEROL SULFATE
     Indication: PRODUCT USED FOR UNKNOWN INDICATION
     Dosage: AS REQUIRED
     Route: 065
  10. OMECLAMOX-PAK [Suspect]
     Active Substance: AMOXICILLIN\CLARITHROMYCIN\OMEPRAZOLE
     Indication: PRODUCT USED FOR UNKNOWN INDICATION
     Dosage: 40 MG, BID
     Route: 065
  11. FORADIL [Suspect]
     Active Substance: FORMOTEROL FUMARATE
     Indication: PRODUCT USED FOR UNKNOWN INDICATION
     Dosage: 2 DF, QD
     Route: 065
  12. PROCTODAN HC [Suspect]
     Active Substance: HYDROCORTISONE\PRAMOXINE\ZINC SULFATE
     Indication: PRODUCT USED FOR UNKNOWN INDICATION
     Dosage: AS REQUIRED
     Route: 065
  13. CLARITHROMYCIN. [Suspect]
     Active Substance: CLARITHROMYCIN
     Indication: PRODUCT USED FOR UNKNOWN INDICATION
     Dosage: 40 MG, BID
  14. PULMICORT TURBUHALER [Concomitant]
     Active Substance: BUDESONIDE
     Indication: SEASONAL ALLERGY
     Dosage: 2 DF, QD
     Route: 045
  15. NYSTATIN. [Suspect]
     Active Substance: NYSTATIN
     Indication: PRODUCT USED FOR UNKNOWN INDICATION
     Dosage: 3 DF, QD
     Route: 048
  16. FORMOTEROL FUMARATE [Suspect]
     Active Substance: FORMOTEROL FUMARATE
     Indication: PRODUCT USED FOR UNKNOWN INDICATION
     Dosage: 2 DF, QD
     Route: 065
  17. AMOXICILLIN. [Suspect]
     Active Substance: AMOXICILLIN
     Indication: PRODUCT USED FOR UNKNOWN INDICATION
     Dosage: 40 MG, BID
  18. PANTOPRAZOLE [Suspect]
     Active Substance: PANTOPRAZOLE
     Indication: PRODUCT USED FOR UNKNOWN INDICATION
     Dosage: 40 MG, BID
  19. MULTIVITAMINS [Concomitant]
     Active Substance: VITAMINS
     Route: 065
  20. FLUTICASONE PROPIONATE. [Suspect]
     Active Substance: FLUTICASONE PROPIONATE
     Indication: PRODUCT USED FOR UNKNOWN INDICATION
     Dosage: 2 DF, QD
     Route: 055
  21. UMECLIDINIUM BROMIDE [Suspect]
     Active Substance: UMECLIDINIUM BROMIDE
     Indication: PRODUCT USED FOR UNKNOWN INDICATION
     Dosage: 1 DF, QD
     Route: 055
  22. VENTOLIN [Suspect]
     Active Substance: ALBUTEROL SULFATE
     Indication: PRODUCT USED FOR UNKNOWN INDICATION
     Dosage: AS REQUIRED
     Route: 065
  23. ATOCK [Suspect]
     Active Substance: FORMOTEROL FUMARATE
     Indication: PRODUCT USED FOR UNKNOWN INDICATION
     Dosage: 1 DF, BID
  24. INFLUENZA VACCINE [Concomitant]
     Active Substance: INFLUENZA VIRUS VACCINE
     Route: 065
  25. METAMUCIL [Concomitant]
     Active Substance: PLANTAGO SEED
     Route: 065
  26. PNEUMOCOCCAL VACCINE POLYVALENT NOS [Concomitant]
     Active Substance: PNEUMOCOCCAL VACCINE POLYVALENT
     Route: 065
  27. FLUCONAZOLE. [Suspect]
     Active Substance: FLUCONAZOLE
     Indication: PRODUCT USED FOR UNKNOWN INDICATION
     Dosage: 50 MG, CYCLICAL
     Route: 065
  28. MONTELUKAST [Suspect]
     Active Substance: MONTELUKAST SODIUM
     Indication: PRODUCT USED FOR UNKNOWN INDICATION
     Dosage: 10 MG, QD
     Route: 065

REACTIONS (36)
  - Chest discomfort [Unknown]
  - Female genital tract fistula [Unknown]
  - Fungal infection [Unknown]
  - Gastrooesophageal reflux disease [Unknown]
  - Sputum increased [Unknown]
  - Chronic sinusitis [Unknown]
  - Candida infection [Unknown]
  - Disease recurrence [Unknown]
  - Dyspnoea exertional [Unknown]
  - Hysterectomy [Unknown]
  - Wheezing [Unknown]
  - Oedema peripheral [Unknown]
  - Asthma [Unknown]
  - Dyspnoea [Unknown]
  - Embolism venous [Unknown]
  - Emphysema [Unknown]
  - Obstructive airways disorder [Unknown]
  - Cough [Unknown]
  - Deep vein thrombosis [Unknown]
  - Diastolic dysfunction [Unknown]
  - Diverticulum [Unknown]
  - Hiatus hernia [Unknown]
  - Iron deficiency anaemia [Unknown]
  - Osteoarthritis [Unknown]
  - Sinusitis fungal [Unknown]
  - Weight increased [Unknown]
  - Lower respiratory tract infection [Unknown]
  - Nasal polyps [Unknown]
  - Salpingo-oophorectomy unilateral [Unknown]
  - Pulmonary embolism [Unknown]
  - Sleep apnoea syndrome [Unknown]
  - Tricuspid valve incompetence [Unknown]
  - Eczema [Unknown]
  - Respiratory symptom [Unknown]
  - Sinusitis [Unknown]
  - Osteoporosis [Unknown]
